FAERS Safety Report 16283346 (Version 1)
Quarter: 2019Q2

REPORT INFORMATION
  Report Type: Spontaneous
  Country: US (occurrence: US)
  Receive Date: 20190507
  Receipt Date: 20190507
  Transmission Date: 20190711
  Serious: No
  Sender: FDA-Public Use
  Company Number: US-AKRON, INC.-2066755

PATIENT
  Age: 65 Year
  Sex: Female

DRUGS (1)
  1. LACTULOSE SOLUTION USP [Suspect]
     Active Substance: LACTULOSE
     Indication: HEPATIC CIRRHOSIS

REACTIONS (1)
  - Drug ineffective [Unknown]
